FAERS Safety Report 7369732-X (Version None)
Quarter: 2011Q1

REPORT INFORMATION
  Report Type: 
  Country: None (occurrence: None)
  Receive Date: 20110323
  Receipt Date: 20110311
  Transmission Date: 20110831
  Serious: Yes (Other)
  Sender: FDA-Public Use
  Company Number: ES-CEPHALON-2011000205

PATIENT
  Sex: Female
  Weight: 80 kg

DRUGS (5)
  1. CAPOTEN [Concomitant]
  2. SEPTRIN-S [Concomitant]
  3. ALLOPURINOL [Concomitant]
  4. BENDAMUSTINE HCL [Suspect]
     Indication: HODGKIN'S DISEASE
     Route: 041
     Dates: start: 20100923
  5. OMEPRAZOLE [Concomitant]

REACTIONS (1)
  - ALOPECIA [None]
